FAERS Safety Report 17529159 (Version 1)
Quarter: 2020Q1

REPORT INFORMATION
  Report Type: Report from Study
  Country: None (occurrence: BR)
  Receive Date: 20200312
  Receipt Date: 20200312
  Transmission Date: 20200409
  Serious: Yes (Hospitalization, Other)
  Sender: FDA-Public Use
  Company Number: BR-ABBVIE-20K-020-3310293-00

PATIENT
  Age: 44 Year
  Sex: Male
  Weight: 76 kg

DRUGS (2)
  1. HUMIRA [Suspect]
     Active Substance: ADALIMUMAB
     Dosage: 1 UNSPECIFIC DOSE
     Route: 058
  2. HUMIRA [Suspect]
     Active Substance: ADALIMUMAB
     Indication: ANKYLOSING SPONDYLITIS
     Dosage: 1 UNSPECIFIC DOSE
     Route: 058
     Dates: start: 20190221

REACTIONS (14)
  - General physical health deterioration [Unknown]
  - Oesophageal prosthesis insertion [Unknown]
  - Pleural effusion [Unknown]
  - Hospitalisation [Recovered/Resolved]
  - Intra-abdominal fluid collection [Unknown]
  - Respiratory failure [Unknown]
  - Cross infection [Recovered/Resolved]
  - Dyspepsia [Unknown]
  - Scar [Recovered/Resolved]
  - Bacterial infection [Unknown]
  - Pulmonary mass [Unknown]
  - Gastric disorder [Unknown]
  - Gastrooesophageal reflux disease [Unknown]
  - Fibrosis [Unknown]

NARRATIVE: CASE EVENT DATE: 201908
